FAERS Safety Report 7079336-4 (Version None)
Quarter: 2010Q4

REPORT INFORMATION
  Report Type: 
  Country: None (occurrence: None)
  Receive Date: 20101102
  Receipt Date: 20100923
  Transmission Date: 20110411
  Serious: No
  Sender: FDA-Public Use
  Company Number: A0870193A

PATIENT
  Age: 66 Year
  Sex: Female
  Weight: 86.4 kg

DRUGS (15)
  1. RYTHMOL SR [Suspect]
     Indication: ATRIAL FIBRILLATION
     Dosage: 225MG TWICE PER DAY
     Route: 048
     Dates: start: 20100421, end: 20100816
  2. METHYLDOPA [Concomitant]
  3. PRIMIDONE [Concomitant]
  4. WARFARIN [Concomitant]
  5. ESTRADIOL [Concomitant]
     Dates: end: 20100808
  6. PROPRANOLOL [Concomitant]
  7. ASPIRIN [Concomitant]
  8. SPIRONOLACTONE [Concomitant]
  9. MEDROXYPROGESTERONE [Concomitant]
     Dates: end: 20100808
  10. FISH OIL [Concomitant]
  11. GLUCOSAMINE CHONDROITIN [Concomitant]
  12. OSCAL [Concomitant]
  13. MULTI-VITAMIN [Concomitant]
  14. MILK THISTLE [Concomitant]
  15. ALPHA-LIPOIC ACID [Concomitant]

REACTIONS (10)
  - ABDOMINAL DISTENSION [None]
  - ARTHRALGIA [None]
  - ASTHENIA [None]
  - CARDIAC FLUTTER [None]
  - CHILLS [None]
  - DRY MOUTH [None]
  - DYSPNOEA [None]
  - FATIGUE [None]
  - MUSCLE SPASMS [None]
  - NAUSEA [None]
